FAERS Safety Report 4649136-0 (Version None)
Quarter: 2005Q2

REPORT INFORMATION
  Report Type: 
  Country: None (occurrence: None)
  Receive Date: 20050331
  Receipt Date: 20041227
  Transmission Date: 20051028
  Serious: No
  Sender: FDA-Public Use
  Company Number: 04P-163-0284561-00

PATIENT
  Age: 70 Year
  Sex: Female
  Weight: 660 kg

DRUGS (18)
  1. HUMIRA [Suspect]
     Indication: RHEUMATOID ARTHRITIS
     Dosage: 40 MG, 1 IN 2 WK, SUBCUTANEOUS
     Route: 058
     Dates: start: 20030701, end: 20041208
  2. MORPHINE [Concomitant]
  3. TYLENOL W/ CODEINE NO. 3 [Concomitant]
  4. FUROSEMIDE [Concomitant]
  5. LISINOPRIL [Concomitant]
  6. POTASSIUM CHLORIDE [Concomitant]
  7. PARACETAMOL [Concomitant]
  8. HYDROXYCHLOROQUINE PHOSPHATE [Concomitant]
  9. FISH OIL [Concomitant]
  10. TOCOPHEROL CONCENTRATE CAP [Concomitant]
  11. ZINC [Concomitant]
  12. DOCUSATE SODIUM [Concomitant]
  13. PYRIDOXINE HYDROCHLORIDE [Concomitant]
  14. L SYNE [Concomitant]
  15. CO Q 10 [Concomitant]
  16. FOLIC ACID [Concomitant]
  17. COPPER [Concomitant]
  18. PROGESTERONE [Concomitant]

REACTIONS (1)
  - RASH [None]
